FAERS Safety Report 6509745-0 (Version None)
Quarter: 2009Q4

REPORT INFORMATION
  Report Type: 
  Country: None (occurrence: None)
  Receive Date: 20091222
  Receipt Date: 20091208
  Transmission Date: 20100525
  Serious: Yes (Other)
  Sender: FDA-Public Use
  Company Number: DE-AMGEN-US381294

PATIENT
  Age: 57 Year
  Sex: Female

DRUGS (3)
  1. ENBREL [Suspect]
     Indication: RHEUMATOID ARTHRITIS
     Route: 058
     Dates: start: 20080730
  2. URSO 250 [Concomitant]
     Route: 065
  3. CELEBREX [Concomitant]
     Dosage: 200 MG, FREQUENCY UNKNOWN
     Route: 065

REACTIONS (3)
  - ARRHYTHMIA [None]
  - HEPATIC CIRRHOSIS [None]
  - TEMPOROMANDIBULAR JOINT SYNDROME [None]
